FAERS Safety Report 8797314 (Version 2)
Quarter: 2012Q4

REPORT INFORMATION
  Report Type: 
  Country: CH (occurrence: CH)
  Receive Date: 20120919
  Receipt Date: 20120927
  Transmission Date: 20130627
  Serious: Yes (Other)
  Sender: FDA-Public Use
  Company Number: CH-PFIZER INC-2012227508

PATIENT
  Age: 14 Year
  Sex: Female

DRUGS (6)
  1. SERTRALINE HCL [Suspect]
     Indication: OBSESSIVE-COMPULSIVE DISORDER
     Dosage: increasing dosage of sertraline
  2. SERTRALINE HCL [Suspect]
     Indication: FEAR OF DISEASE
     Dosage: 200 mg, per day
  3. LORAZEPAM [Concomitant]
     Indication: OBSESSIVE-COMPULSIVE DISORDER
     Dosage: 0.5 mg, daily
  4. LORAZEPAM [Concomitant]
     Indication: FEAR OF DISEASE
  5. OLANZAPINE [Concomitant]
     Indication: OBSESSIVE-COMPULSIVE DISORDER
     Dosage: 10 mg, daily
  6. OLANZAPINE [Concomitant]
     Indication: FEAR OF DISEASE

REACTIONS (4)
  - Grand mal convulsion [Recovered/Resolved]
  - Drug level increased [Unknown]
  - Depressive symptom [Unknown]
  - Anxiety [Unknown]
